FAERS Safety Report 8541679-2 (Version None)
Quarter: 2012Q3

REPORT INFORMATION
  Report Type: 
  Country: None (occurrence: None)
  Receive Date: 20120726
  Receipt Date: 20120713
  Transmission Date: 20120928
  Serious: Yes (Hospitalization)
  Sender: FDA-Public Use
  Company Number: CA-ROCHE-1091130

PATIENT
  Sex: Male

DRUGS (6)
  1. PEGASYS [Suspect]
     Indication: HEPATITIS C
  2. VENLAFAXINE [Concomitant]
  3. RANITIDINE [Concomitant]
  4. BLINDED BI 201335 (HCV PROTEASE INHIBITOR) [Suspect]
     Indication: HEPATITIS C
  5. COPEGUS [Suspect]
     Indication: HEPATITIS C
  6. MELOXICAM [Concomitant]

REACTIONS (2)
  - DYSPNOEA [None]
  - PERICARDITIS [None]
